FAERS Safety Report 9036339 (Version 1)
Quarter: 2013Q1

REPORT INFORMATION
  Report Type: Spontaneous
  Country: GB (occurrence: None)
  Receive Date: 20130114
  Receipt Date: 20130114
  Transmission Date: 20140127
  Serious: Yes (Life-Threatening)
  Sender: FDA-Public Use
  Company Number: FK201300017

PATIENT
  Age: 65 Year
  Sex: Male

DRUGS (6)
  1. PROPOFOL [Suspect]
     Indication: ANAESTHESIA
     Route: 042
     Dates: start: 201209, end: 201209
  2. ATRACURIUM [Suspect]
     Route: 042
     Dates: start: 201209, end: 201209
  3. CHLORHEXIDINE [Suspect]
     Route: 061
     Dates: start: 201209, end: 201209
  4. FENTANYL [Suspect]
     Route: 042
     Dates: start: 201209, end: 201209
  5. FLUCLOXACILLIN [Suspect]
     Route: 042
     Dates: start: 201209, end: 201209
  6. GENTAMICIN [Suspect]
     Route: 042

REACTIONS (4)
  - Hypotension [None]
  - Tachycardia [None]
  - Rash [None]
  - Bronchospasm [None]
